FAERS Safety Report 9440903 (Version 2)
Quarter: 2013Q3

REPORT INFORMATION
  Report Type: Spontaneous
  Country: FR (occurrence: FR)
  Receive Date: 20130805
  Receipt Date: 20130905
  Transmission Date: 20140515
  Serious: Yes (Hospitalization)
  Sender: FDA-Public Use
  Company Number: FR-ABBOTT-13P-056-1126888-00

PATIENT
  Age: 50 Year
  Sex: Female

DRUGS (11)
  1. NORVIR [Suspect]
     Indication: HIV INFECTION
     Route: 048
     Dates: start: 20130115, end: 20130127
  2. EPIRUBICINE [Suspect]
     Indication: BREAST CANCER STAGE III
     Route: 042
     Dates: start: 20130118
  3. EPIRUBICINE [Suspect]
     Route: 042
     Dates: start: 2013
  4. CYCLOPHOSPHAMIDE [Suspect]
     Indication: BREAST CANCER STAGE III
     Route: 042
     Dates: start: 20130118
  5. REYATAZ [Suspect]
     Indication: HIV INFECTION
     Route: 048
     Dates: start: 20130115, end: 20130727
  6. TRUVADA [Suspect]
     Indication: HIV INFECTION
     Route: 048
     Dates: start: 20130115, end: 20130127
  7. ATARAX [Concomitant]
     Indication: PRODUCT USED FOR UNKNOWN INDICATION
     Route: 048
  8. COKENZEN [Concomitant]
     Indication: HYPERTENSION
     Dosage: 8MG/12.5MG
     Route: 048
  9. VERAPAMIL [Concomitant]
     Indication: HYPERTENSION
     Route: 048
  10. CHEMOTHERAPEUTICS [Concomitant]
     Indication: PRODUCT USED FOR UNKNOWN INDICATION
     Dosage: 2.6 CYCLES
     Dates: start: 20130115, end: 20130503
  11. GCSF [Concomitant]
     Indication: PRODUCT USED FOR UNKNOWN INDICATION
     Dates: start: 20130115

REACTIONS (15)
  - Febrile neutropenia [Recovering/Resolving]
  - Renal failure acute [Recovered/Resolved]
  - Anaemia [Unknown]
  - Cholestasis [Recovered/Resolved]
  - Jaundice [Unknown]
  - Chills [Unknown]
  - Blood pressure abnormal [Unknown]
  - Asthenia [Unknown]
  - Mucosal inflammation [Recovered/Resolved]
  - Pancytopenia [Recovering/Resolving]
  - Hyponatraemia [Recovered/Resolved]
  - Blood culture positive [Recovered/Resolved]
  - Pyrexia [Recovered/Resolved]
  - Oral herpes [Not Recovered/Not Resolved]
  - Hyperbilirubinaemia [Recovered/Resolved]
